FAERS Safety Report 17880709 (Version 1)
Quarter: 2020Q2

REPORT INFORMATION
  Report Type: Spontaneous
  Country: US (occurrence: US)
  Receive Date: 20200610
  Receipt Date: 20200610
  Transmission Date: 20200714
  Serious: Yes (Hospitalization, Disabling, Other)
  Sender: FDA-Public Use
  Company Number: None

PATIENT
  Age: 42 Year
  Sex: Female
  Weight: 72 kg

DRUGS (8)
  1. METFORMIN [Concomitant]
     Active Substance: METFORMIN HYDROCHLORIDE
  2. VITAMIN B COMPLEX [Concomitant]
     Active Substance: CYANOCOBALAMIN\DEXPANTHENOL\NIACINAMIDE\PYRIDOXINE HYDROCHLORIDE\RIBOFLAVIN 5^-PHOSPHATE SODIUM\THIAMINE HYDROCHLORIDE\VITAMIN B COMPLEX
  3. CALCIUM [Concomitant]
     Active Substance: CALCIUM
  4. LEVOTHYROXINE. [Suspect]
     Active Substance: LEVOTHYROXINE
  5. VITAMIN D [Concomitant]
     Active Substance: VITAMIN D NOS
  6. IRON [Concomitant]
     Active Substance: IRON
  7. HAIR VITAMINS [Concomitant]
  8. NP THYROID [Suspect]
     Active Substance: LEVOTHYROXINE\LIOTHYRONINE
     Indication: HYPOTHYROIDISM
     Route: 048

REACTIONS (19)
  - Muscle disorder [None]
  - Polyp [None]
  - Impaired driving ability [None]
  - Fatigue [None]
  - Weight fluctuation [None]
  - Muscle tightness [None]
  - Loss of personal independence in daily activities [None]
  - Alopecia [None]
  - Arthropathy [None]
  - Hysterectomy [None]
  - Heart rate increased [None]
  - Endometriosis [None]
  - Hypersensitivity [None]
  - Recalled product administered [None]
  - Depression [None]
  - Mood swings [None]
  - Anxiety [None]
  - Menstruation irregular [None]
  - Temperature intolerance [None]

NARRATIVE: CASE EVENT DATE: 20190101
